FAERS Safety Report 6372266-2 (Version None)
Quarter: 2009Q3

REPORT INFORMATION
  Report Type: 
  Country: None (occurrence: None)
  Receive Date: 20090924
  Receipt Date: 20090917
  Transmission Date: 20100115
  Serious: Yes (Hospitalization)
  Sender: FDA-Public Use
  Company Number: US-BIOGENIDEC-2009BI028594

PATIENT
  Age: 51 Year
  Sex: Female

DRUGS (2)
  1. AVONEX [Suspect]
     Indication: MULTIPLE SCLEROSIS
     Route: 030
     Dates: start: 20090710
  2. CHEMOTHERAPY [Concomitant]
     Indication: BREAST CANCER

REACTIONS (3)
  - MASTECTOMY [None]
  - NEUTROPENIA [None]
  - PYREXIA [None]
